FAERS Safety Report 23041196 (Version 2)
Quarter: 2023Q4

REPORT INFORMATION
  Report Type: Spontaneous
  Country: US (occurrence: US)
  Receive Date: 20231007
  Receipt Date: 20231012
  Transmission Date: 20240110
  Serious: No
  Sender: FDA-Public Use
  Company Number: US-AMGEN-USASP2023177178

PATIENT

DRUGS (1)
  1. REPATHA [Suspect]
     Active Substance: EVOLOCUMAB
     Indication: Blood cholesterol increased
     Route: 065

REACTIONS (8)
  - Neck pain [Unknown]
  - Migraine [Unknown]
  - Paranasal sinus discomfort [Unknown]
  - Pollakiuria [Unknown]
  - Pain in extremity [Unknown]
  - Fatigue [Unknown]
  - Influenza like illness [Unknown]
  - Back pain [Unknown]
